FAERS Safety Report 4912032-5 (Version None)
Quarter: 2006Q1

REPORT INFORMATION
  Report Type: 
  Country: None (occurrence: None)
  Receive Date: 20060215
  Receipt Date: 20051115
  Transmission Date: 20060701
  Serious: Yes (Other)
  Sender: FDA-Public Use
  Company Number: US-AMGEN-US157986

PATIENT
  Sex: Female
  Weight: 63 kg

DRUGS (8)
  1. EPOGEN [Suspect]
     Indication: PRE-EXISTING DISEASE
     Route: 058
     Dates: start: 20040701, end: 20050622
  2. PEGULATED INTERFERON ALFA-2B [Suspect]
     Dates: start: 20040701, end: 20050228
  3. RIBAVIRIN [Suspect]
     Dates: start: 20040701, end: 20050620
  4. LOTENSIN [Concomitant]
     Dates: start: 20050530
  5. ACTOS [Concomitant]
     Dates: start: 20040530
  6. PRILOSEC [Concomitant]
  7. NEURONTIN [Concomitant]
     Dates: start: 20050120
  8. NORTRIPTYLINE HCL [Concomitant]

REACTIONS (3)
  - ANTI-ERYTHROPOIETIN ANTIBODY POSITIVE [None]
  - APLASIA PURE RED CELL [None]
  - THROMBOCYTOPENIA [None]
